FAERS Safety Report 6229815-4 (Version None)
Quarter: 2009Q2

REPORT INFORMATION
  Report Type: 
  Country: None (occurrence: None)
  Receive Date: 20090615
  Receipt Date: 20090603
  Transmission Date: 20091009
  Serious: Yes (Other)
  Sender: FDA-Public Use
  Company Number: NL-PFIZER INC-2009222236

PATIENT
  Age: 42 Year

DRUGS (1)
  1. VORICONAZOLE [Suspect]

REACTIONS (1)
  - DRUG RESISTANCE [None]
